FAERS Safety Report 17043176 (Version 1)
Quarter: 2019Q4

REPORT INFORMATION
  Report Type: Spontaneous
  Country: US (occurrence: US)
  Receive Date: 20191118
  Receipt Date: 20191118
  Transmission Date: 20200122
  Serious: No
  Sender: FDA-Public Use
  Company Number: US-CYCLE PHARMACEUTICALS LTD-2019-CYC-000007

PATIENT
  Sex: Male

DRUGS (2)
  1. NITYR [Suspect]
     Active Substance: NITISINONE
     Indication: TYROSINAEMIA
     Dosage: 10 MG, BID
     Route: 048
     Dates: start: 20190710
  2. NITYR [Suspect]
     Active Substance: NITISINONE
     Indication: TYROSINAEMIA
     Dosage: 2 MG, BID
     Route: 048
     Dates: start: 20190710

REACTIONS (1)
  - Anger [Unknown]
